FAERS Safety Report 5812005-4 (Version None)
Quarter: 2008Q3

REPORT INFORMATION
  Report Type: 
  Country: None (occurrence: None)
  Receive Date: 20080716
  Receipt Date: 20080715
  Transmission Date: 20090109
  Serious: Yes (Hospitalization)
  Sender: FDA-Public Use
  Company Number: US-ASTRAZENECA-2007UW22546

PATIENT
  Age: 27 Year
  Sex: Female
  Weight: 126.4 kg

DRUGS (5)
  1. SEROQUEL XR [Suspect]
     Indication: MANIA
     Route: 048
     Dates: start: 20070905
  2. SEROQUEL XR [Suspect]
     Route: 048
     Dates: start: 20070906
  3. XANAX [Suspect]
     Dates: start: 20070905, end: 20070917
  4. PAXIL [Concomitant]
  5. LUNESTA [Concomitant]

REACTIONS (2)
  - OVERDOSE [None]
  - SUICIDE ATTEMPT [None]
